FAERS Safety Report 10554228 (Version 1)
Quarter: 2014Q4

REPORT INFORMATION
  Report Type: Spontaneous
  Country: FR (occurrence: FR)
  Receive Date: 20141030
  Receipt Date: 20141030
  Transmission Date: 20150529
  Serious: Yes (Hospitalization)
  Sender: FDA-Public Use
  Company Number: FR-MERCK-1410FRA014130

PATIENT
  Age: 73 Year
  Sex: Male

DRUGS (5)
  1. INVANZ [Suspect]
     Active Substance: ERTAPENEM SODIUM
     Dosage: UNK
     Route: 042
     Dates: start: 2013
  2. LASILIX [Suspect]
     Active Substance: FUROSEMIDE
     Dosage: 60 MG, DAILY; STRENGTH: 20MG/2ML
     Route: 042
     Dates: start: 20140911, end: 201409
  3. ZYVOXID [Suspect]
     Active Substance: LINEZOLID
     Indication: CHRONIC OBSTRUCTIVE PULMONARY DISEASE
     Dosage: 600 MG, BID, TOTAL DAILY DOSE: 1200MG; STRENGTH: 2MG/ML
     Route: 042
     Dates: start: 20140905, end: 20140915
  4. INVANZ [Suspect]
     Active Substance: ERTAPENEM SODIUM
     Indication: CHRONIC OBSTRUCTIVE PULMONARY DISEASE
     Dosage: 1 G, DAILY
     Route: 042
     Dates: start: 20140915, end: 20140920
  5. LASILIX [Suspect]
     Active Substance: FUROSEMIDE
     Dosage: TOTAL DAILY DOSE: 60MG, STRENGTH 20MG/2ML
     Route: 048
     Dates: start: 20140922, end: 20140922

REACTIONS (3)
  - Rash pustular [Recovered/Resolved]
  - Erythema [Recovered/Resolved]
  - Rash [Recovered/Resolved]

NARRATIVE: CASE EVENT DATE: 20140920
